FAERS Safety Report 9655524 (Version 1)
Quarter: 2013Q4

REPORT INFORMATION
  Report Type: Spontaneous
  Country: GB (occurrence: GB)
  Receive Date: 20131029
  Receipt Date: 20131029
  Transmission Date: 20140711
  Serious: Yes (Disabling, Other)
  Sender: FDA-Public Use
  Company Number: PHHY2013GB109865

PATIENT
  Age: 53 Year
  Sex: Male
  Weight: 76.65 kg

DRUGS (6)
  1. CITALOPRAM HYDROBROMIDE [Suspect]
     Indication: DEPRESSION
     Dosage: 40 MG, UNK
     Route: 048
     Dates: start: 20130901, end: 20130922
  2. SIMVASTATIN [Concomitant]
  3. METFORMIN [Concomitant]
  4. RAMIPRIL [Concomitant]
  5. PARACETAMOL [Concomitant]
  6. CODEINE [Concomitant]

REACTIONS (1)
  - Mood swings [Not Recovered/Not Resolved]
